FAERS Safety Report 5646056-X (Version None)
Quarter: 2008Q1

REPORT INFORMATION
  Report Type: 
  Country: None (occurrence: None)
  Receive Date: 20080229
  Receipt Date: 20080221
  Transmission Date: 20080703
  Serious: Yes (Disabling, Other)
  Sender: FDA-Public Use
  Company Number: GB-ABBOTT-08P-167-0437475-00

PATIENT
  Sex: Male

DRUGS (5)
  1. HUMIRA [Suspect]
     Indication: ANKYLOSING SPONDYLITIS
     Route: 058
     Dates: start: 20080128
  2. OXYCODONE HYDROCHLORIDE [Concomitant]
     Indication: ANALGESIA
     Route: 048
  3. ESCITALOPRAM OXALATE [Concomitant]
     Indication: DEPRESSION
     Route: 048
  4. PANTOPRAZOLE [Concomitant]
     Indication: DYSPEPSIA
     Route: 048
  5. ALVERINE CITRATE [Concomitant]
     Indication: MUSCLE SPASMS

REACTIONS (6)
  - ABDOMINAL DISTENSION [None]
  - ABDOMINAL PAIN [None]
  - ALANINE AMINOTRANSFERASE INCREASED [None]
  - DECREASED APPETITE [None]
  - ORAL INTAKE REDUCED [None]
  - VOMITING [None]
